FAERS Safety Report 10997321 (Version 1)
Quarter: 2015Q2

REPORT INFORMATION
  Report Type: Spontaneous
  Country: US (occurrence: None)
  Receive Date: 20150402
  Receipt Date: 20150402
  Transmission Date: 20150821
  Serious: Yes (Hospitalization)
  Sender: FDA-Public Use
  Company Number: 2014-US-012872

PATIENT
  Age: 29 Year
  Sex: Male

DRUGS (2)
  1. FAZACLO [Suspect]
     Active Substance: CLOZAPINE
     Indication: SCHIZOAFFECTIVE DISORDER
     Dosage: 125-350 MG, QD, ORAL?
     Route: 048
     Dates: start: 20070927, end: 20140810
  2. XANAX [Concomitant]
     Active Substance: ALPRAZOLAM

REACTIONS (2)
  - Tremor [None]
  - Withdrawal syndrome [None]

NARRATIVE: CASE EVENT DATE: 2014
